FAERS Safety Report 6107218-0 (Version None)
Quarter: 2009Q1

REPORT INFORMATION
  Report Type: 
  Country: None (occurrence: None)
  Receive Date: 20090305
  Receipt Date: 20090305
  Transmission Date: 20090719
  Serious: Yes (Other)
  Sender: FDA-Public Use
  Company Number: None

PATIENT
  Age: 38 Year
  Sex: Male
  Weight: 102.0593 kg

DRUGS (1)
  1. ZYRTEC [Suspect]
     Indication: SEASONAL ALLERGY
     Dosage: 10MG 1 DAILY PO
     Route: 048
     Dates: start: 20040504, end: 20090223

REACTIONS (1)
  - PRURITUS [None]
